FAERS Safety Report 5496290-7 (Version None)
Quarter: 2007Q4

REPORT INFORMATION
  Report Type: 
  Country: None (occurrence: None)
  Receive Date: 20071025
  Receipt Date: 20070501
  Transmission Date: 20080405
  Serious: Yes (Other)
  Sender: FDA-Public Use
  Company Number: A0644088A

PATIENT
  Age: 82 Year
  Sex: Male
  Weight: 106.8 kg

DRUGS (6)
  1. ADVAIR DISKUS 100/50 [Suspect]
     Indication: ASTHMA
     Dosage: 1PUFF TWICE PER DAY
     Route: 055
     Dates: start: 20070101
  2. UNSPECIFIED MEDICATION [Concomitant]
  3. ZOCOR [Concomitant]
  4. HYTRIN [Concomitant]
  5. BETA BLOCKER [Concomitant]
  6. VITAMIN E [Concomitant]

REACTIONS (3)
  - ASTHMA [None]
  - PHARMACEUTICAL PRODUCT COMPLAINT [None]
  - WHEEZING [None]
